FAERS Safety Report 9576008 (Version 1)
Quarter: 2013Q4

REPORT INFORMATION
  Report Type: Spontaneous
  Country: US (occurrence: US)
  Receive Date: 20131001
  Receipt Date: 20131001
  Transmission Date: 20140711
  Serious: No
  Sender: FDA-Public Use
  Company Number: US-AMGEN-USASP2013001160

PATIENT
  Age: 43 Year
  Sex: Female
  Weight: 66.67 kg

DRUGS (10)
  1. ENBREL [Suspect]
     Indication: PRODUCT USED FOR UNKNOWN INDICATION
     Dosage: 50 MG, QWK
     Route: 058
  2. ENBREL [Suspect]
  3. METHOTREXATE [Concomitant]
     Dosage: 50 MG/2ML
  4. PLAQUENIL                          /00072602/ [Concomitant]
     Dosage: 200 MG, UNK
  5. PREDNISONE [Concomitant]
     Dosage: 10 MG, UNK
  6. CALCIUM [Concomitant]
     Dosage: 500 UNK, UNK
  7. FOLIC ACID [Concomitant]
     Dosage: UNK
  8. BONIVA [Concomitant]
     Dosage: 150 MG, UNK
  9. VITAMIN B 12 [Concomitant]
     Dosage: 250 MUG, UNK
  10. LEVOTHYROXIN [Concomitant]
     Dosage: 112 MUG, UNK

REACTIONS (1)
  - Injection site reaction [Unknown]
